FAERS Safety Report 5426001-2 (Version None)
Quarter: 2007Q3

REPORT INFORMATION
  Report Type: 
  Country: None (occurrence: None)
  Receive Date: 20070823
  Receipt Date: 20070823
  Transmission Date: 20080115
  Serious: No
  Sender: FDA-Public Use
  Company Number: None

PATIENT
  Sex: Female
  Weight: 52.6173 kg

DRUGS (2)
  1. PERCOCET [Suspect]
     Indication: ARTHRALGIA
     Dosage: 7.5/500 ONCE PO Q4 PO
     Route: 048
  2. PERCOCET [Suspect]
     Indication: OSTEOARTHRITIS
     Dosage: 7.5/500 ONCE PO Q4 PO
     Route: 048

REACTIONS (1)
  - NAUSEA [None]
